FAERS Safety Report 8430548-4 (Version None)
Quarter: 2012Q2

REPORT INFORMATION
  Report Type: 
  Country: None (occurrence: None)
  Receive Date: 20120612
  Receipt Date: 20120606
  Transmission Date: 20120825
  Serious: Yes (Hospitalization, Other)
  Sender: FDA-Public Use
  Company Number: RU-GLAXOSMITHKLINE-B0681472A

PATIENT
  Age: 24 Year
  Sex: Female
  Weight: 48 kg

DRUGS (1)
  1. CEFUROXIME [Suspect]
     Indication: CYSTITIS
     Dosage: 250MG PER DAY
     Route: 048
     Dates: start: 20101014, end: 20101016

REACTIONS (4)
  - THROAT IRRITATION [None]
  - DYSPNOEA [None]
  - NAUSEA [None]
  - ANAPHYLACTOID REACTION [None]
